FAERS Safety Report 6871370-X (Version None)
Quarter: 2010Q3

REPORT INFORMATION
  Report Type: 
  Country: None (occurrence: None)
  Receive Date: 20100723
  Receipt Date: 20100712
  Transmission Date: 20110219
  Serious: Yes (Hospitalization, Other)
  Sender: FDA-Public Use
  Company Number: US-PFIZER INC-2009227429

PATIENT
  Sex: Female

DRUGS (5)
  1. CHANTIX [Suspect]
     Indication: SMOKING CESSATION THERAPY
     Dosage: 0.5MG/1MG
     Route: 048
     Dates: start: 20070723, end: 20070819
  2. AMBIEN [Concomitant]
     Indication: INSOMNIA
     Dosage: UNK
     Dates: start: 20040801
  3. CYMBALTA [Concomitant]
     Indication: DEPRESSION
     Dosage: UNK
     Dates: start: 20060601, end: 20081201
  4. DEPAKOTE [Concomitant]
     Indication: DEPRESSION
     Dosage: UNK
     Dates: start: 20011101, end: 20080401
  5. DEPAKOTE [Concomitant]
     Indication: BIPOLAR DISORDER

REACTIONS (13)
  - ABNORMAL BEHAVIOUR [None]
  - AGGRESSION [None]
  - AMNESIA [None]
  - ANXIETY [None]
  - CHEST PAIN [None]
  - DELUSION [None]
  - DEPRESSION [None]
  - DISTURBANCE IN ATTENTION [None]
  - DYSPNOEA [None]
  - HALLUCINATION [None]
  - MOOD SWINGS [None]
  - PANIC ATTACK [None]
  - SUICIDE ATTEMPT [None]
